FAERS Safety Report 9090718 (Version 1)
Quarter: 2013Q1

REPORT INFORMATION
  Report Type: Report from Study
  Country: US (occurrence: US)
  Receive Date: 20130131
  Receipt Date: 20130131
  Transmission Date: 20140127
  Serious: No
  Sender: FDA-Public Use
  Company Number: US-ABBOTT-12P-163-1011631-00

PATIENT
  Age: 36 Year
  Sex: Male
  Weight: 65.83 kg

DRUGS (2)
  1. HUMIRA [Suspect]
     Indication: PSORIASIS
     Route: 058
     Dates: start: 20120507, end: 201209
  2. HUMIRA [Suspect]
     Dates: start: 201211

REACTIONS (3)
  - Arthropod bite [Recovered/Resolved]
  - Skin infection [Recovered/Resolved]
  - Psoriasis [Not Recovered/Not Resolved]
